FAERS Safety Report 5890163-3 (Version None)
Quarter: 2008Q3

REPORT INFORMATION
  Report Type: 
  Country: None (occurrence: None)
  Receive Date: 20080919
  Receipt Date: 20080909
  Transmission Date: 20090109
  Serious: Yes (Hospitalization, Other)
  Sender: FDA-Public Use
  Company Number: FR-PFIZER INC-2008072146

PATIENT
  Sex: Female

DRUGS (3)
  1. CELEBREX [Suspect]
     Indication: POLYARTHRITIS
     Dates: start: 20030101
  2. DILTIAZEM HCL [Suspect]
     Indication: HYPERTENSION
     Dosage: FREQ:DAILY: EVERY DAY
     Route: 048
     Dates: start: 20080716
  3. FLUDEX [Suspect]
     Indication: HYPERTENSION
     Dosage: FREQ:DAILY: EVERY DAY
     Route: 048
     Dates: end: 20080716

REACTIONS (3)
  - ANAEMIA [None]
  - FATIGUE [None]
  - NEUTROPENIA [None]
